FAERS Safety Report 8807640 (Version 4)
Quarter: 2012Q4

REPORT INFORMATION
  Report Type: 
  Country: US (occurrence: US)
  Receive Date: 20120925
  Receipt Date: 20121214
  Transmission Date: 20130627
  Serious: Yes (Hospitalization)
  Sender: FDA-Public Use
  Company Number: US-BIOGENIDEC-2012BI039470

PATIENT
  Age: 49 Year
  Sex: Female

DRUGS (6)
  1. TYSABRI [Suspect]
     Indication: MULTIPLE SCLEROSIS
     Route: 042
     Dates: start: 20111021
  2. GABAPENTIN [Concomitant]
     Indication: PAIN
  3. TIZANIDINE [Concomitant]
     Indication: MUSCLE SPASTICITY
  4. XANAX [Concomitant]
     Indication: ANXIETY
  5. LORTAB [Concomitant]
     Indication: PAIN
  6. STERIOD (NOS) [Concomitant]

REACTIONS (6)
  - Sciatica [Not Recovered/Not Resolved]
  - Ill-defined disorder [Unknown]
  - Back pain [Unknown]
  - Gait disturbance [Not Recovered/Not Resolved]
  - Asthenia [Not Recovered/Not Resolved]
  - Multiple sclerosis relapse [Unknown]
